FAERS Safety Report 12324637 (Version 2)
Quarter: 2016Q2

REPORT INFORMATION
  Report Type: Spontaneous
  Country: DE (occurrence: DE)
  Receive Date: 20160502
  Receipt Date: 20160502
  Transmission Date: 20160815
  Serious: Yes (Hospitalization)
  Sender: FDA-Public Use
  Company Number: DE-JUBILANT CADISTA PHARMACEUTICALS-2016JUB00150

PATIENT
  Age: 46 Year
  Sex: Male

DRUGS (1)
  1. CARBAMAZEPINE. [Suspect]
     Active Substance: CARBAMAZEPINE
     Dosage: 10 TABLETS (3,500 MG) BETWEEN THE CURRENT AND THE PREVIOUS DAY
     Route: 048

REACTIONS (4)
  - Rhabdomyolysis [Unknown]
  - Overdose [Recovered/Resolved]
  - Cerebellar syndrome [Unknown]
  - Toxicity to various agents [Unknown]
